FAERS Safety Report 9317040 (Version 1)
Quarter: 2013Q2

REPORT INFORMATION
  Report Type: Spontaneous
  Country: US (occurrence: None)
  Receive Date: 20130524
  Receipt Date: 20130524
  Transmission Date: 20140414
  Serious: Yes (Other)
  Sender: FDA-Public Use
  Company Number: JPI-P-031827

PATIENT
  Age: 38 Year
  Sex: Female
  Weight: 75.75 kg

DRUGS (8)
  1. XYREM (500 MILLIGRAM/MILLILITERS, SOLUTION) (SODIUM OXYBATE) [Suspect]
     Indication: NARCOLEPSY
     Dosage: 6GM (3GM, 2 IN 1D)
     Route: 048
     Dates: start: 20090403, end: 2009
  2. XYREM (500 MILLIGRAM/MILLILITERS, SOLUTION) (SODIUM OXYBATE) [Suspect]
     Indication: SOMNOLENCE
     Dosage: 6GM (3GM, 2 IN 1D)
     Route: 048
     Dates: start: 20090403, end: 2009
  3. IODORAL SUPPLEMENT [Concomitant]
  4. ARMOUR THYROID [Concomitant]
  5. VITAMIN B12 [Concomitant]
  6. POLATE SUPPLEMENT [Concomitant]
  7. PRENATAL VITAMINS [Concomitant]
  8. OMALIZUMAB [Concomitant]

REACTIONS (3)
  - Maternal drugs affecting foetus [None]
  - Stillbirth [None]
  - Vomiting in pregnancy [None]
